FAERS Safety Report 20214981 (Version 1)
Quarter: 2021Q4

REPORT INFORMATION
  Report Type: Spontaneous
  Country: MY (occurrence: MY)
  Receive Date: 20211222
  Receipt Date: 20211222
  Transmission Date: 20220303
  Serious: Yes (Hospitalization, Other)
  Sender: FDA-Public Use
  Company Number: MY-LUPIN PHARMACEUTICALS INC.-2021-25147

PATIENT
  Age: 80 Year
  Sex: Female

DRUGS (7)
  1. LAMOTRIGINE [Suspect]
     Active Substance: LAMOTRIGINE
     Indication: Bipolar disorder
     Dosage: 150 MILLIGRAM, QD (IN DIVIDED DOSES)
     Route: 065
  2. CLOZAPINE [Suspect]
     Active Substance: CLOZAPINE
     Indication: Bipolar disorder
     Dosage: 6.25 MILLIGRAM, QD ; EVERY NIGHT
     Route: 065
  3. CLOZAPINE [Suspect]
     Active Substance: CLOZAPINE
     Dosage: UNK (DOSE REDUCED)
     Route: 065
  4. LITHIUM CARBONATE [Concomitant]
     Active Substance: LITHIUM CARBONATE
     Indication: Bipolar disorder
     Dosage: UNK
     Route: 065
  5. LITHIUM CARBONATE [Concomitant]
     Active Substance: LITHIUM CARBONATE
     Dosage: UNK (INITIALLY DISCONTINUED THEN RESTARTED)
     Route: 065
  6. SODIUM CHLORIDE [Concomitant]
     Active Substance: SODIUM CHLORIDE
     Indication: Hyponatraemia
     Dosage: UNK
     Route: 065
  7. ASENAPINE [Concomitant]
     Active Substance: ASENAPINE
     Indication: Bipolar disorder
     Dosage: UNK
     Route: 065

REACTIONS (4)
  - Osmotic demyelination syndrome [Recovered/Resolved]
  - Acute kidney injury [Recovering/Resolving]
  - Sedation [Recovering/Resolving]
  - Somnolence [Recovering/Resolving]
